FAERS Safety Report 4579536-9 (Version None)
Quarter: 2005Q1

REPORT INFORMATION
  Report Type: 
  Country: None (occurrence: None)
  Receive Date: 20050209
  Receipt Date: 20050209
  Transmission Date: 20050727
  Serious: Yes (Other)
  Sender: FDA-Public Use
  Company Number: None

PATIENT
  Age: 18 Year
  Sex: Female
  Weight: 102.9665 kg

DRUGS (3)
  1. OXYCONTIN [Suspect]
     Indication: LUMBAR RADICULOPATHY
     Dosage: 80 MG, 2 BID
     Dates: start: 20041101
  2. ROXICODONE [Suspect]
     Dosage: 30 MG 17 TAB/?? (14,400 MG
  3. CARISOPROD?? [Suspect]

REACTIONS (7)
  - ABDOMINAL PAIN UPPER [None]
  - ANXIETY [None]
  - CHEST PAIN [None]
  - DYSPHAGIA [None]
  - INSOMNIA [None]
  - PRURITUS [None]
  - URTICARIA [None]
